FAERS Safety Report 12995651 (Version 1)
Quarter: 2016Q4

REPORT INFORMATION
  Report Type: Spontaneous
  Country: US (occurrence: US)
  Receive Date: 20161202
  Receipt Date: 20161202
  Transmission Date: 20170207
  Serious: No
  Sender: FDA-Public Use
  Company Number: US-GLAXOSMITHKLINE-US2016GSK176592

PATIENT
  Sex: Female

DRUGS (4)
  1. LAMOTRIGINE TABLET [Suspect]
     Active Substance: LAMOTRIGINE
     Indication: AFFECTIVE DISORDER
     Dosage: 300 MG, QD
     Route: 048
     Dates: start: 2016, end: 2016
  2. LOSARTAN. [Concomitant]
     Active Substance: LOSARTAN
  3. CLONAZEPAM. [Concomitant]
     Active Substance: CLONAZEPAM
  4. HYDROCHLOROTHIAZIDE. [Concomitant]
     Active Substance: HYDROCHLOROTHIAZIDE

REACTIONS (3)
  - Mood altered [Unknown]
  - Drug ineffective [Unknown]
  - Therapeutic response changed [Unknown]
